FAERS Safety Report 21139279 (Version 2)
Quarter: 2022Q3

REPORT INFORMATION
  Report Type: Spontaneous
  Country: US (occurrence: US)
  Receive Date: 20220727
  Receipt Date: 20220728
  Transmission Date: 20221026
  Serious: No
  Sender: FDA-Public Use
  Company Number: US-PFIZER INC-PV202200030789

PATIENT
  Age: 55 Year
  Sex: Female
  Weight: 105.69 kg

DRUGS (1)
  1. ESTRADIOL [Suspect]
     Active Substance: ESTRADIOL
     Dosage: UNK

REACTIONS (3)
  - Alopecia [Unknown]
  - Fatigue [Unknown]
  - Drug ineffective [Unknown]
